FAERS Safety Report 11292450 (Version 1)
Quarter: 2015Q3

REPORT INFORMATION
  Report Type: Spontaneous
  Country: US (occurrence: None)
  Receive Date: 20150721
  Receipt Date: 20150721
  Transmission Date: 20151125
  Serious: No
  Sender: FDA-Public Use
  Company Number: None

PATIENT
  Age: 66 Year
  Sex: Male

DRUGS (1)
  1. ENOXAPARIN [Suspect]
     Active Substance: ENOXAPARIN
     Route: 058
     Dates: start: 20120628, end: 20120702

REACTIONS (8)
  - Wheezing [None]
  - Dyspnoea exertional [None]
  - Heparin-induced thrombocytopenia [None]
  - Dyspnoea [None]
  - Metastases to spine [None]
  - Dizziness [None]
  - Productive cough [None]
  - Thrombocytopenia [None]

NARRATIVE: CASE EVENT DATE: 20120706
